FAERS Safety Report 21938762 (Version 1)
Quarter: 2023Q1

REPORT INFORMATION
  Report Type: Spontaneous
  Country: JP (occurrence: JP)
  Receive Date: 20230201
  Receipt Date: 20230201
  Transmission Date: 20230418
  Serious: Yes (Life-Threatening, Hospitalization, Other)
  Sender: FDA-Public Use
  Company Number: JP-TAKEDA-2022TJP036552

PATIENT
  Age: 66 Year
  Sex: Female
  Weight: 45.5 kg

DRUGS (9)
  1. CABOMETYX [Suspect]
     Active Substance: CABOZANTINIB S-MALATE
     Indication: Renal cancer
     Dosage: 60 MG, QD
     Route: 048
     Dates: start: 20211116, end: 20220113
  2. NEXIUM [Concomitant]
     Active Substance: ESOMEPRAZOLE MAGNESIUM
     Dosage: 20 MG, QD
     Route: 048
     Dates: start: 20211020
  3. CALONAL [Concomitant]
     Active Substance: ACETAMINOPHEN
     Dosage: 600 MG, BID
     Route: 048
     Dates: start: 20211102, end: 20220124
  4. CORTRIL [Concomitant]
     Active Substance: HYDROCORTISONE
     Indication: Hypothyroidism
     Dosage: 15 MG
     Route: 048
     Dates: start: 20211007
  5. CALCIUM CARBONATE\CHOLECALCIFEROL\MAGNESIUM CARBONATE [Concomitant]
     Active Substance: CALCIUM CARBONATE\CHOLECALCIFEROL\MAGNESIUM CARBONATE
     Indication: Prophylaxis
     Dosage: 1 {DF}, BID
     Route: 048
     Dates: start: 20211105
  6. VERAPAMIL HYDROCHLORIDE [Concomitant]
     Active Substance: VERAPAMIL HYDROCHLORIDE
     Dosage: 40 MG, BID
     Route: 048
     Dates: start: 20211214
  7. BENIDIPINE HYDROCHLORIDE [Concomitant]
     Active Substance: BENIDIPINE HYDROCHLORIDE
     Dosage: 4 MG, QD
     Route: 048
     Dates: start: 20211006
  8. ATORVASTATIN [Concomitant]
     Active Substance: ATORVASTATIN
     Dosage: 5 MG, QD
     Route: 048
     Dates: start: 20211006
  9. DENOSUMAB [Concomitant]
     Active Substance: DENOSUMAB
     Dosage: 1 {DF}, MONTHLY
     Route: 065
     Dates: start: 20211108

REACTIONS (2)
  - Small intestinal perforation [Recovering/Resolving]
  - Hyperamylasaemia [Unknown]

NARRATIVE: CASE EVENT DATE: 20220113
